FAERS Safety Report 25996212 (Version 2)
Quarter: 2025Q4

REPORT INFORMATION
  Report Type: Report from Study
  Country: US (occurrence: US)
  Receive Date: 20251104
  Receipt Date: 20251229
  Transmission Date: 20260117
  Serious: Yes (Hospitalization)
  Sender: SANOFI AVENTIS
  Company Number: US-SANOFI-02704691

PATIENT
  Age: 12 Year
  Sex: Male

DRUGS (2)
  1. FITUSIRAN [Suspect]
     Active Substance: FITUSIRAN
     Indication: Factor IX deficiency
     Dosage: 50 MG, QM
     Route: 058
     Dates: start: 20250929
  2. FITUSIRAN [Suspect]
     Active Substance: FITUSIRAN
     Indication: Factor VIII deficiency
     Dosage: 20 MG, Q3M
     Route: 042

REACTIONS (3)
  - Haemorrhage [Unknown]
  - Off label use [Unknown]
  - Incorrect route of product administration [Unknown]

NARRATIVE: CASE EVENT DATE: 20251001
